FAERS Safety Report 4357134-X (Version None)
Quarter: 2004Q2

REPORT INFORMATION
  Report Type: 
  Country: None (occurrence: None)
  Receive Date: 20040511
  Receipt Date: 20040416
  Transmission Date: 20050107
  Serious: Yes (Life-Threatening, Hospitalization)
  Sender: FDA-Public Use
  Company Number: EWC040438877

PATIENT
  Age: 58 Year
  Sex: Male
  Weight: 103 kg

DRUGS (2)
  1. KEFZOL [Suspect]
     Indication: PREOPERATIVE CARE
     Dosage: 2 G
     Dates: start: 20031217
  2. KEFZOL [Suspect]
     Indication: PROPHYLAXIS
     Dosage: 2 G
     Dates: start: 20031217

REACTIONS (12)
  - DRUG ERUPTION [None]
  - DYSPNOEA [None]
  - EXANTHEM [None]
  - EYELID OEDEMA [None]
  - FACE OEDEMA [None]
  - FLUSHING [None]
  - HYPOTENSION [None]
  - LARYNGEAL OEDEMA [None]
  - NAUSEA [None]
  - PARAESTHESIA [None]
  - STRIDOR [None]
  - TONGUE OEDEMA [None]
